FAERS Safety Report 19246292 (Version 1)
Quarter: 2021Q2

REPORT INFORMATION
  Report Type: Spontaneous
  Country: CN (occurrence: CN)
  Receive Date: 20210512
  Receipt Date: 20210512
  Transmission Date: 20210717
  Serious: Yes (Other)
  Sender: FDA-Public Use
  Company Number: CN-PFIZER INC-2021520323

PATIENT
  Age: 50 Year
  Sex: Female

DRUGS (1)
  1. CLINDAMYCIN PHOSPHATE. [Suspect]
     Active Substance: CLINDAMYCIN PHOSPHATE
     Indication: ANTI-INFECTIVE THERAPY
     Dosage: 0.9 G, 2X/DAY
     Dates: start: 202104

REACTIONS (10)
  - Dermatitis allergic [Recovering/Resolving]
  - Connective tissue disorder [Unknown]
  - Systemic lupus erythematosus [Recovering/Resolving]
  - Oropharyngeal discomfort [Unknown]
  - Cough [Unknown]
  - Rash [Recovering/Resolving]
  - Papule [Recovering/Resolving]
  - Erythema [Recovering/Resolving]
  - Pallor [Unknown]
  - Body temperature increased [Recovering/Resolving]

NARRATIVE: CASE EVENT DATE: 202104
